FAERS Safety Report 7269461-7 (Version None)
Quarter: 2011Q1

REPORT INFORMATION
  Report Type: 
  Country: None (occurrence: None)
  Receive Date: 20110124
  Receipt Date: 20110106
  Transmission Date: 20110831
  Serious: Yes (Hospitalization, Other)
  Sender: FDA-Public Use
  Company Number: 2010P1002151

PATIENT
  Age: 58 Year
  Sex: Female
  Weight: 117.9352 kg

DRUGS (11)
  1. PHENERGAN [Concomitant]
  2. LORTAB (ACETAMINIOPHEN AND HYDROCODONE) [Concomitant]
  3. LYRICA [Concomitant]
  4. CARBAMAZEPINE [Suspect]
     Indication: FRONTAL LOBE EPILEPSY
     Dosage: 100 MG;TID;PO ; 200 MG;TID;PO
     Route: 048
     Dates: start: 20080901, end: 20081101
  5. CARBAMAZEPINE [Suspect]
     Indication: FRONTAL LOBE EPILEPSY
     Dosage: 100 MG;TID;PO ; 200 MG;TID;PO
     Route: 048
     Dates: start: 20081101, end: 20081208
  6. XANAX [Concomitant]
  7. ZANAFLEX [Concomitant]
  8. ATIVAM (LORAZEPAM) [Concomitant]
  9. DYNACIRC [Concomitant]
  10. HYZAAR (HYDROCHLOROTHIAZIDE AND LOSARTAN) [Concomitant]
  11. MELOXICAN [Concomitant]

REACTIONS (25)
  - ASPARTATE AMINOTRANSFERASE INCREASED [None]
  - BLOOD CREATINE PHOSPHOKINASE MB INCREASED [None]
  - LIP OEDEMA [None]
  - ANTICONVULSANT DRUG LEVEL DECREASED [None]
  - CONJUNCTIVAL IRRITATION [None]
  - VOMITING [None]
  - RASH MACULAR [None]
  - SKIN EXFOLIATION [None]
  - GAIT DISTURBANCE [None]
  - FATIGUE [None]
  - SINUS DISORDER [None]
  - MYOGLOBIN BLOOD INCREASED [None]
  - CEREBRAL ISCHAEMIA [None]
  - RASH MORBILLIFORM [None]
  - RASH PRURITIC [None]
  - OROPHARYNGEAL PAIN [None]
  - DYSPHAGIA [None]
  - ACUTE SINUSITIS [None]
  - NAUSEA [None]
  - BLOOD ALKALINE PHOSPHATASE INCREASED [None]
  - OEDEMA [None]
  - ALANINE AMINOTRANSFERASE INCREASED [None]
  - CONFUSIONAL STATE [None]
  - BLOOD UREA INCREASED [None]
  - BLOOD CREATININE INCREASED [None]
